FAERS Safety Report 24556702 (Version 2)
Quarter: 2024Q4

REPORT INFORMATION
  Report Type: Other
  Country: CN (occurrence: CN)
  Receive Date: 20241028
  Receipt Date: 20241122
  Transmission Date: 20250114
  Serious: Yes (Hospitalization, Disabling, Other)
  Sender: PAREXEL
  Company Number: 4501011010013202400658

PATIENT

DRUGS (1)
  1. XERAVA [Suspect]
     Active Substance: ERAVACYCLINE DIHYDROCHLORIDE
     Indication: Pancreatitis acute
     Dosage: 50 MG, BID
     Route: 041
     Dates: start: 20241013, end: 20241015

REACTIONS (2)
  - Blood bilirubin increased [Unknown]
  - Hepatic enzyme increased [Unknown]

NARRATIVE: CASE EVENT DATE: 20241015
